FAERS Safety Report 13652942 (Version 1)
Quarter: 2017Q2

REPORT INFORMATION
  Report Type: Spontaneous
  Country: US (occurrence: US)
  Receive Date: 20170614
  Receipt Date: 20170614
  Transmission Date: 20170830
  Serious: Yes (Hospitalization, Other)
  Sender: FDA-Public Use
  Company Number: US-ROCHE-698451

PATIENT
  Age: 76 Year
  Sex: Male
  Weight: 106.1 kg

DRUGS (9)
  1. NORVASC [Concomitant]
     Active Substance: AMLODIPINE BESYLATE
     Indication: BLOOD PRESSURE MANAGEMENT
     Dosage: FREQUENCY: DAILY
     Route: 048
  2. IBUPROFEN. [Concomitant]
     Active Substance: IBUPROFEN
     Indication: PAIN
     Dosage: FREQUENCY: AS REQUIRED (PRN)
     Route: 048
  3. COMPAZINE [Concomitant]
     Active Substance: PROCHLORPERAZINE MALEATE
     Indication: NAUSEA
     Dosage: OTHER INDICATION: VOMITING, FREQUENCY: AS REQUIRED (PRN)
     Route: 048
  4. COREG [Concomitant]
     Active Substance: CARVEDILOL
     Dosage: INDICATION: HIGH BP
     Route: 048
  5. OXALIPLATIN. [Suspect]
     Active Substance: OXALIPLATIN
     Indication: COLON CANCER METASTATIC
     Dosage: FREQUENCY: XI
     Route: 042
     Dates: start: 20100401, end: 20100401
  6. ASA [Concomitant]
     Active Substance: ASPIRIN
     Dosage: INDICATION: CARDIAC, FREQUENCY: DAILY
     Route: 048
  7. PROPOXYPHENE. [Concomitant]
     Active Substance: PROPOXYPHENE
     Dosage: FREQUENCY: AS REQUIRED (PRN)
     Route: 065
  8. XELODA [Suspect]
     Active Substance: CAPECITABINE
     Indication: COLON CANCER METASTATIC
     Route: 048
     Dates: start: 20100401, end: 20100406
  9. ISOSORBIDMONONITRAT [Concomitant]
     Dosage: DRUG REPORTED AS: ISORBMONO, INDICATION: CARDIAC, FREQUENCY: DAILY
     Route: 048

REACTIONS (2)
  - Arteriospasm coronary [Unknown]
  - Angina pectoris [Unknown]

NARRATIVE: CASE EVENT DATE: 20100405
